FAERS Safety Report 18987462 (Version 1)
Quarter: 2021Q1

REPORT INFORMATION
  Report Type: Spontaneous
  Country: JP (occurrence: JP)
  Receive Date: 20210309
  Receipt Date: 20210309
  Transmission Date: 20210420
  Serious: Yes (Hospitalization)
  Sender: FDA-Public Use
  Company Number: JP-JNJFOC-20210305846

PATIENT
  Age: 9 Decade
  Sex: Male

DRUGS (2)
  1. DUROTEP [Suspect]
     Active Substance: FENTANYL
     Dosage: FENTANYL (MATRIX PATCH) 25MCG/HR
     Route: 062
     Dates: start: 20210301
  2. DUROTEP [Suspect]
     Active Substance: FENTANYL
     Indication: PRODUCT USED FOR UNKNOWN INDICATION
     Dosage: FENTANYL (MATRIX PATCH) 25MCG/HR
     Route: 062
     Dates: end: 20210226

REACTIONS (2)
  - Surgery [Unknown]
  - Somnolence [Recovering/Resolving]

NARRATIVE: CASE EVENT DATE: 20210226
